FAERS Safety Report 25868078 (Version 1)
Quarter: 2025Q4

REPORT INFORMATION
  Report Type: Spontaneous
  Country: CN (occurrence: CN)
  Receive Date: 20251001
  Receipt Date: 20251001
  Transmission Date: 20260118
  Serious: Yes (Hospitalization)
  Sender: ACCORD
  Company Number: None

PATIENT
  Age: 65 Year
  Sex: Female
  Weight: 52 kg

DRUGS (4)
  1. DOCETAXEL [Suspect]
     Active Substance: DOCETAXEL
     Indication: Invasive breast carcinoma
     Dosage: 120 MILLIGRAM, QD
     Route: 042
     Dates: start: 20250401
  2. TRASTUZUMAB [Suspect]
     Active Substance: TRASTUZUMAB
     Indication: Invasive breast carcinoma
     Dosage: 330 MILLIGRAM, QD, IV DRIP
     Route: 042
     Dates: start: 20250401
  3. DOCETAXEL [Suspect]
     Active Substance: DOCETAXEL
     Indication: Invasive breast carcinoma
     Dosage: 120 MILLIGRAM, QD; IV DRIP
     Route: 042
     Dates: start: 20250826, end: 20250826
  4. TRASTUZUMAB [Suspect]
     Active Substance: TRASTUZUMAB
     Indication: Invasive breast carcinoma
     Dosage: 330 MILLIGRAM, QD, IV DRIP
     Route: 042
     Dates: start: 20250826, end: 20250826

REACTIONS (2)
  - Granulocytopenia [Recovered/Resolved]
  - Pyrexia [Unknown]

NARRATIVE: CASE EVENT DATE: 20250902
